FAERS Safety Report 7640346-7 (Version None)
Quarter: 2011Q3

REPORT INFORMATION
  Report Type: 
  Country: None (occurrence: None)
  Receive Date: 20110728
  Receipt Date: 20110715
  Transmission Date: 20111222
  Serious: Yes (Hospitalization, Other)
  Sender: FDA-Public Use
  Company Number: US-BAYER-201036691NA

PATIENT
  Age: 29 Year
  Sex: Female
  Weight: 68.481 kg

DRUGS (5)
  1. AMOXICILLIN AND CLAVULANATE POTASSIUM [Concomitant]
  2. YAZ [Suspect]
     Indication: CONTRACEPTION
     Dosage: UNK
     Route: 048
     Dates: start: 20080722, end: 20090101
  3. AUGMENTIN '125' [Concomitant]
     Dosage: UNK
     Dates: start: 20080101
  4. LODINE [Concomitant]
     Dosage: UNK
     Dates: start: 20080101
  5. ETODOLAC [Concomitant]
     Dosage: UNK
     Dates: start: 20080101

REACTIONS (5)
  - CHOLECYSTITIS CHRONIC [None]
  - BILE DUCT OBSTRUCTION [None]
  - CHOLELITHIASIS [None]
  - CHOLECYSTITIS [None]
  - ABDOMINAL PAIN LOWER [None]
